FAERS Safety Report 7969388-9 (Version None)
Quarter: 2011Q4

REPORT INFORMATION
  Report Type: 
  Country: None (occurrence: None)
  Receive Date: 20111211
  Receipt Date: 20051024
  Transmission Date: 20120403
  Serious: Yes (Other)
  Sender: FDA-Public Use
  Company Number: PHHY2005BR006995

PATIENT
  Age: 71 Year
  Sex: Female
  Weight: 81 kg

DRUGS (5)
  1. DIOCOMB SI [Suspect]
     Indication: HYPERTENSION
     Dosage: 80/20MG
  2. CALCIUM [Concomitant]
     Indication: GENERAL PHYSICAL HEALTH DETERIORATION
     Dosage: ONE TABLET A DAY (MORNING)
  3. DIOCOMB SI [Suspect]
     Dosage: 80/10MG
  4. LOVAZA [Concomitant]
     Indication: GENERAL PHYSICAL HEALTH DETERIORATION
     Dosage: 1 DF, QD
  5. VITAMIN TAB [Concomitant]
     Indication: GENERAL PHYSICAL HEALTH DETERIORATION
     Dosage: ONE TABLET A DAY (MORNING)

REACTIONS (9)
  - INSOMNIA [None]
  - PERIPHERAL COLDNESS [None]
  - BLOOD PRESSURE INCREASED [None]
  - ILLUSION [None]
  - BLOOD CHOLESTEROL INCREASED [None]
  - BLOOD TRIGLYCERIDES INCREASED [None]
  - SOMNOLENCE [None]
  - HEART RATE INCREASED [None]
  - BLOOD PRESSURE SYSTOLIC INCREASED [None]
